FAERS Safety Report 24812862 (Version 2)
Quarter: 2025Q1

REPORT INFORMATION
  Report Type: Spontaneous
  Country: US (occurrence: US)
  Receive Date: 20250107
  Receipt Date: 20250109
  Transmission Date: 20250409
  Serious: No
  Sender: AMGEN
  Company Number: US-AMGEN-USASP2025001116

PATIENT
  Age: 72 Year
  Sex: Male

DRUGS (1)
  1. REPATHA [Suspect]
     Active Substance: EVOLOCUMAB
     Indication: Blood cholesterol increased
     Dosage: 140 MILLIGRAM, Q2WK
     Route: 065

REACTIONS (3)
  - Injection site bruising [Unknown]
  - Injection site haemorrhage [Unknown]
  - Injection site pain [Recovered/Resolved]

NARRATIVE: CASE EVENT DATE: 20250102
